FAERS Safety Report 10309025 (Version 2)
Quarter: 2014Q4

REPORT INFORMATION
  Report Type: Spontaneous
  Country: IT (occurrence: IT)
  Receive Date: 20140716
  Receipt Date: 20141029
  Transmission Date: 20150528
  Serious: Yes (Hospitalization, Other)
  Sender: FDA-Public Use
  Company Number: IT-ELI_LILLY_AND_COMPANY-IT201407003148

PATIENT
  Age: 0 Year
  Sex: Female

DRUGS (1)
  1. HUMALOG [Suspect]
     Active Substance: INSULIN LISPRO
     Indication: GESTATIONAL DIABETES
     Dosage: 10 IU, QD
     Route: 064
     Dates: start: 20120830, end: 20130422

REACTIONS (5)
  - Premature baby [Unknown]
  - Echoencephalogram abnormal [Recovering/Resolving]
  - Brachial plexus injury [Recovering/Resolving]
  - Retinal haemorrhage [Recovering/Resolving]
  - Foetal exposure during pregnancy [Recovered/Resolved]

NARRATIVE: CASE EVENT DATE: 20120830
